FAERS Safety Report 9248616 (Version 1)
Quarter: 2013Q1

REPORT INFORMATION
  Report Type: Spontaneous
  Country: US (occurrence: None)
  Receive Date: 20121120
  Receipt Date: 20121120
  Transmission Date: 20140127
  Serious: No
  Sender: FDA-Public Use
  Company Number: 1000038263

PATIENT
  Age: 19 Year
  Sex: Female

DRUGS (2)
  1. VIIBRYD (VILAZODONE) [Suspect]
     Indication: ANXIETY
     Route: 048
     Dates: start: 20120821, end: 20120827
  2. MELATONIN (MELATONIN) (MELATONIN) [Concomitant]

REACTIONS (3)
  - Irritability [None]
  - Fatigue [None]
  - Off label use [None]
